FAERS Safety Report 8246499-4 (Version None)
Quarter: 2012Q1

REPORT INFORMATION
  Report Type: 
  Country: None (occurrence: None)
  Receive Date: 20120327
  Receipt Date: 20120229
  Transmission Date: 20120608
  Serious: Yes (Hospitalization, Other)
  Sender: FDA-Public Use
  Company Number: 2012PROUSA01009

PATIENT
  Age: 71 Year
  Sex: Male
  Weight: 102 kg

DRUGS (7)
  1. NORVASC [Concomitant]
  2. PROVENGE [Suspect]
     Indication: PROSTATE CANCER METASTATIC
     Dosage: 250 ML, SINGLE, INTRAVENOUS
     Route: 042
     Dates: start: 20120112, end: 20120112
  3. MEGACE [Concomitant]
  4. PROVENGE [Suspect]
     Dosage: 250 ML, SINGLE, INTRAVENOUS
     Route: 042
     Dates: start: 20120126, end: 20120126
  5. COMPAZINE /00013302/ (PROCHLOPERAZINE EDISYLATE) [Concomitant]
  6. PROVENGE [Suspect]
     Dosage: 250 ML, SINGLE, INTRAVENOUS
     Route: 042
     Dates: start: 20120209, end: 20120209
  7. TERAZOSIN HCL [Concomitant]

REACTIONS (14)
  - SINUS CONGESTION [None]
  - TACHYCARDIA [None]
  - HAEMOGLOBIN DECREASED [None]
  - OROPHARYNGEAL PAIN [None]
  - PYREXIA [None]
  - COUGH [None]
  - OXYGEN SATURATION DECREASED [None]
  - UPPER-AIRWAY COUGH SYNDROME [None]
  - CHILLS [None]
  - BLOOD PRESSURE INCREASED [None]
  - PROTEIN URINE PRESENT [None]
  - PAIN [None]
  - SINUSITIS [None]
  - INFUSION RELATED REACTION [None]
